FAERS Safety Report 25321419 (Version 2)
Quarter: 2025Q3

REPORT INFORMATION
  Report Type: Spontaneous
  Country: US (occurrence: US)
  Receive Date: 20250516
  Receipt Date: 20250708
  Transmission Date: 20251021
  Serious: Yes (Hospitalization, Other)
  Sender: BRISTOL-MYERS SQUIBB COMPANY
  Company Number: US-BRISTOL-MYERS SQUIBB COMPANY-2025-069304

PATIENT
  Age: 71 Year
  Sex: Female
  Weight: 58.5 kg

DRUGS (25)
  1. ELIQUIS [Suspect]
     Active Substance: APIXABAN
     Indication: Peripheral vascular disorder
     Route: 048
     Dates: start: 20240814, end: 20250129
  2. ELIQUIS [Suspect]
     Active Substance: APIXABAN
     Route: 048
     Dates: start: 20240823
  3. ASPIRIN [Suspect]
     Active Substance: ASPIRIN
     Indication: Product used for unknown indication
  4. PLAVIX [Suspect]
     Active Substance: CLOPIDOGREL BISULFATE
     Indication: Cerebrovascular accident
  5. PROVENTIL [Concomitant]
     Active Substance: ALBUTEROL
     Indication: Dyspnoea
     Dosage: EVERY 4 HOURS AS NEEDED
     Route: 055
     Dates: start: 20240929
  6. NORVASC [Concomitant]
     Active Substance: AMLODIPINE BESYLATE
     Indication: Essential hypertension
     Route: 048
     Dates: start: 20240929
  7. LIPITOR [Concomitant]
     Active Substance: ATORVASTATIN CALCIUM
     Indication: Blood pressure measurement
     Route: 048
     Dates: start: 20240229, end: 20241020
  8. SODIUM PICOSULFATE [Concomitant]
     Active Substance: SODIUM PICOSULFATE
     Indication: Product used for unknown indication
     Route: 048
     Dates: start: 20240729
  9. ZOSTRIX HP [Concomitant]
     Active Substance: CAPSAICIN
     Indication: Product used for unknown indication
     Route: 061
     Dates: start: 20240908
  10. VITAMIN D3 [Concomitant]
     Active Substance: CHOLECALCIFEROL
     Indication: Product used for unknown indication
     Route: 048
     Dates: start: 20231019, end: 20250326
  11. BENTYL [Concomitant]
     Active Substance: DICYCLOMINE HYDROCHLORIDE
     Indication: Abdominal pain
     Dosage: BEFORE MEAL
     Route: 048
     Dates: start: 20240924, end: 20250326
  12. FLONASE [Concomitant]
     Active Substance: FLUTICASONE PROPIONATE
     Indication: Product used for unknown indication
     Route: 055
     Dates: start: 20220302
  13. FLUTICASONE FUROATE\UMECLIDINIUM BROMIDE\VILANTEROL TRIFENATATE [Concomitant]
     Active Substance: FLUTICASONE FUROATE\UMECLIDINIUM BROMIDE\VILANTEROL TRIFENATATE
     Indication: Product used for unknown indication
     Route: 055
     Dates: start: 20240728
  14. NEURONTIN [Concomitant]
     Active Substance: GABAPENTIN
     Indication: Paraesthesia
     Route: 048
     Dates: start: 20240924
  15. HYDROCHLOROTHIAZIDE [Concomitant]
     Active Substance: HYDROCHLOROTHIAZIDE
     Indication: Product used for unknown indication
     Route: 048
  16. CEPHULAC [Concomitant]
     Active Substance: LACTULOSE
     Indication: Product used for unknown indication
     Dosage: AS NEEDED, 20 GM/30 ML
     Route: 048
     Dates: start: 20240908
  17. ROBAXIN [Concomitant]
     Active Substance: METHOCARBAMOL
     Indication: Product used for unknown indication
     Route: 048
     Dates: start: 20240908, end: 20250326
  18. ELOCON [Concomitant]
     Active Substance: MOMETASONE FUROATE
     Indication: Product used for unknown indication
     Dosage: AS NEEDED ARMS AND LEGS
     Route: 061
     Dates: start: 20230608
  19. VITAMINS [Concomitant]
     Active Substance: VITAMINS
     Indication: Product used for unknown indication
     Route: 048
     Dates: start: 20220505
  20. HABITROL [Concomitant]
     Active Substance: NICOTINE
     Indication: Product used for unknown indication
     Dosage: 1 PATCH BY TRANSDERMAL ROUTE DAILY
     Route: 062
     Dates: start: 20240729, end: 20250326
  21. PAMELOR [Concomitant]
     Active Substance: NORTRIPTYLINE HYDROCHLORIDE
     Indication: Product used for unknown indication
     Route: 048
  22. PERCOCET [Concomitant]
     Active Substance: ACETAMINOPHEN\OXYCODONE HYDROCHLORIDE
     Indication: Cancer pain
     Dosage: 5-325 MG
     Route: 048
     Dates: start: 20240924, end: 20241210
  23. PERCOCET [Concomitant]
     Active Substance: ACETAMINOPHEN\OXYCODONE HYDROCHLORIDE
     Indication: Paraesthesia
  24. OMEPRAZOLE [Concomitant]
     Active Substance: OMEPRAZOLE
     Indication: Product used for unknown indication
     Route: 048
     Dates: start: 20240728
  25. SENNOSIDES [Concomitant]
     Active Substance: SENNOSIDES
     Indication: Product used for unknown indication
     Route: 048
     Dates: start: 20240802

REACTIONS (4)
  - Blood loss anaemia [Recovering/Resolving]
  - Acute kidney injury [Recovering/Resolving]
  - Upper gastrointestinal haemorrhage [Unknown]
  - Colitis [Unknown]

NARRATIVE: CASE EVENT DATE: 20240821
